FAERS Safety Report 20368955 (Version 3)
Quarter: 2022Q2

REPORT INFORMATION
  Report Type: Spontaneous
  Country: US (occurrence: US)
  Receive Date: 20220124
  Receipt Date: 20220401
  Transmission Date: 20220720
  Serious: No
  Sender: FDA-Public Use
  Company Number: US-GLAXOSMITHKLINE-US2022AMR011981

PATIENT
  Sex: Female

DRUGS (2)
  1. ZEJULA [Suspect]
     Active Substance: NIRAPARIB
     Indication: Ovarian cancer
     Dosage: 300 MG, QD
  2. ZEJULA [Suspect]
     Active Substance: NIRAPARIB
     Indication: Ovarian cancer metastatic

REACTIONS (6)
  - Nausea [Unknown]
  - Haemoglobin decreased [Unknown]
  - Asthenia [Unknown]
  - Ill-defined disorder [Unknown]
  - Drug monitoring procedure not performed [Unknown]
  - Product dose omission issue [Unknown]
